FAERS Safety Report 21511641 (Version 2)
Quarter: 2022Q4

REPORT INFORMATION
  Report Type: Spontaneous
  Country: IT (occurrence: IT)
  Receive Date: 20221027
  Receipt Date: 20221220
  Transmission Date: 20230113
  Serious: Yes (Other)
  Sender: FDA-Public Use
  Company Number: IT-TAKEDA-2022TUS078117

PATIENT
  Age: 54 Year
  Sex: Female

DRUGS (1)
  1. ENANTONE LP [Suspect]
     Active Substance: LEUPROLIDE ACETATE
     Indication: Endometriosis
     Dosage: DOSAGE: 11.25 MG/ML 11.25 MG/ML, UNK
     Route: 065
     Dates: start: 20220731

REACTIONS (1)
  - Diabetes insipidus [Unknown]
